FAERS Safety Report 7576855-9 (Version None)
Quarter: 2011Q2

REPORT INFORMATION
  Report Type: 
  Country: None (occurrence: None)
  Receive Date: 20110624
  Receipt Date: 20110624
  Transmission Date: 20111010
  Serious: Yes (Other)
  Sender: FDA-Public Use
  Company Number: None

PATIENT
  Age: 49 Year
  Sex: Male
  Weight: 94.3482 kg

DRUGS (3)
  1. METOPROLOL TARTRATE [Concomitant]
  2. MULTAQ [Concomitant]
  3. PRADAXA [Suspect]
     Indication: ATRIAL FIBRILLATION
     Dosage: 150MG 2X PER DAY PO
     Route: 048
     Dates: start: 20110215, end: 20110530

REACTIONS (1)
  - HYPERSENSITIVITY [None]
